FAERS Safety Report 8151453-7 (Version None)
Quarter: 2012Q1

REPORT INFORMATION
  Report Type: 
  Country: None (occurrence: None)
  Receive Date: 20120220
  Receipt Date: 20120209
  Transmission Date: 20120608
  Serious: Yes (Other)
  Sender: FDA-Public Use
  Company Number: US-ROCHE-1039133

PATIENT
  Sex: Male
  Weight: 69.916 kg

DRUGS (1)
  1. PEGASYS [Suspect]
     Indication: PRODUCT USED FOR UNKNOWN INDICATION
     Route: 065

REACTIONS (19)
  - PYREXIA [None]
  - ASTHMA [None]
  - DRY MOUTH [None]
  - DYSGEUSIA [None]
  - COLON OPERATION [None]
  - ABDOMINAL PAIN UPPER [None]
  - DRY SKIN [None]
  - ANAEMIA [None]
  - PAIN [None]
  - PRURITUS [None]
  - DIARRHOEA [None]
  - NAUSEA [None]
  - WEIGHT DECREASED [None]
  - SYNCOPE [None]
  - WHITE BLOOD CELL COUNT DECREASED [None]
  - VOMITING [None]
  - ARTHRITIS [None]
  - PANCREAS INFECTION [None]
  - BLOOD POTASSIUM [None]
